FAERS Safety Report 5398444-7 (Version None)
Quarter: 2007Q3

REPORT INFORMATION
  Report Type: 
  Country: None (occurrence: None)
  Receive Date: 20070724
  Receipt Date: 20070713
  Transmission Date: 20080115
  Serious: Yes (Other)
  Sender: FDA-Public Use
  Company Number: CERZ-11784

PATIENT
  Age: 17 Year
  Sex: Male
  Weight: 63 kg

DRUGS (2)
  1. CEREZYME [Suspect]
     Indication: GAUCHER'S DISEASE
     Dosage: 30 U/KG Q2WKS IV
     Route: 042
     Dates: start: 19980515
  2. ANTISEIZURE MEDICATION (UNSPECIFIED) [Concomitant]

REACTIONS (4)
  - INCORRECT DOSE ADMINISTERED [None]
  - RETINAL DEPOSITS [None]
  - VISUAL ACUITY REDUCED [None]
  - VITREOUS DISORDER [None]
